FAERS Safety Report 20086508 (Version 1)
Quarter: 2021Q4

REPORT INFORMATION
  Report Type: Spontaneous
  Country: PL (occurrence: PL)
  Receive Date: 20211118
  Receipt Date: 20211118
  Transmission Date: 20220303
  Serious: Yes (Other)
  Sender: FDA-Public Use
  Company Number: PL-002147023-NVSC2021PL247749

PATIENT
  Sex: Male

DRUGS (3)
  1. BOSUTINIB [Suspect]
     Active Substance: BOSUTINIB
     Dosage: 200 MG, QD
  2. BOSUTINIB [Suspect]
     Active Substance: BOSUTINIB
     Dosage: UNK
  3. DASATINIB [Suspect]
     Active Substance: DASATINIB

REACTIONS (5)
  - Philadelphia chromosome positive [Unknown]
  - Dyspnoea [Unknown]
  - Skin disorder [Unknown]
  - Abdominal discomfort [Unknown]
  - Nausea [Unknown]
